FAERS Safety Report 4973953-0 (Version None)
Quarter: 2006Q2

REPORT INFORMATION
  Report Type: 
  Country: None (occurrence: None)
  Receive Date: 20060410
  Receipt Date: 20060330
  Transmission Date: 20061013
  Serious: Yes (Death)
  Sender: FDA-Public Use
  Company Number: USA-2005-0021797

PATIENT
  Age: 49 Year
  Sex: Female
  Weight: 68 kg

DRUGS (10)
  1. OXYCONTIN [Suspect]
     Indication: PAIN
     Dosage: 40 MG, BID, 10 MG, BID,
     Dates: end: 20050819
  2. OXYCONTIN [Suspect]
     Indication: PAIN
     Dosage: 40 MG, BID, 10 MG, BID,
     Dates: start: 20040101
  3. VENLAFAXINE HCL [Suspect]
     Indication: DRUG USE FOR UNKNOWN INDICATION
  4. ETHANOL (ETHANOL) [Suspect]
     Indication: DRUG USE FOR UNKNOWN INDICATION
  5. ACETAMINOPHEN [Suspect]
     Indication: DRUG USE FOR UNKNOWN INDICATION
  6. MIRTAZAPINE [Suspect]
     Indication: DRUG USE FOR UNKNOWN INDICATION
  7. CARISOPRODOL [Suspect]
     Indication: DRUG USE FOR UNKNOWN INDICATION
  8. OXYMORPHONE HYDROCHLORIDE [Suspect]
     Indication: DRUG USE FOR UNKNOWN INDICATION
  9. ULTRAM [Concomitant]
  10. VICODIN ES [Concomitant]

REACTIONS (6)
  - BLOOD ALCOHOL INCREASED [None]
  - CHOLELITHIASIS [None]
  - COMPLETED SUICIDE [None]
  - MULTIPLE DRUG OVERDOSE [None]
  - MUSCLE SPASMS [None]
  - PLEURAL EFFUSION [None]
